FAERS Safety Report 7558371-3 (Version None)
Quarter: 2011Q2

REPORT INFORMATION
  Report Type: 
  Country: None (occurrence: None)
  Receive Date: 20110620
  Receipt Date: 20110607
  Transmission Date: 20111010
  Serious: Yes (Other)
  Sender: FDA-Public Use
  Company Number: PHHY2011BR16336

PATIENT
  Sex: Female

DRUGS (2)
  1. RASILEZ AMLO [Suspect]
     Dosage: 150 MG ALIS AND 5MG AMLO
  2. EXFORGE [Suspect]
     Dosage: 80 MG VALS AND 5 MG AMLO

REACTIONS (3)
  - RENAL DISORDER [None]
  - DRUG INEFFECTIVE [None]
  - HYPERTENSION [None]
